FAERS Safety Report 13276795 (Version 1)
Quarter: 2017Q1

REPORT INFORMATION
  Report Type: Spontaneous
  Country: US (occurrence: US)
  Receive Date: 20170228
  Receipt Date: 20170228
  Transmission Date: 20170428
  Serious: No
  Sender: FDA-Public Use
  Company Number: US-009507513-1702USA011976

PATIENT
  Sex: Male

DRUGS (1)
  1. FUROSEMIDE. [Suspect]
     Active Substance: FUROSEMIDE
     Dosage: UNK,
     Route: 048

REACTIONS (4)
  - Mood swings [Unknown]
  - Somnolence [Unknown]
  - Fatigue [Unknown]
  - Hypersensitivity [Unknown]
